FAERS Safety Report 9508146 (Version 1)
Quarter: 2013Q3

REPORT INFORMATION
  Report Type: Spontaneous
  Country: US (occurrence: None)
  Receive Date: 20130906
  Receipt Date: 20130906
  Transmission Date: 20140515
  Serious: Yes (Hospitalization)
  Sender: FDA-Public Use
  Company Number: None

PATIENT
  Age: 70 Year
  Sex: Female
  Weight: 56.2 kg

DRUGS (3)
  1. 5-FLUOROURACIL (5-FU) [Suspect]
     Dates: end: 20130813
  2. LEUCOVORIN CALCIUM [Suspect]
     Dates: end: 20130813
  3. OXALIPLATIN (ELOXATIN) [Suspect]
     Dates: end: 20130813

REACTIONS (20)
  - Nausea [None]
  - Vomiting [None]
  - Febrile neutropenia [None]
  - Blister [None]
  - Lip swelling [None]
  - Oral pain [None]
  - Dysuria [None]
  - Dysphagia [None]
  - Fatigue [None]
  - Asthenia [None]
  - Mucosal inflammation [None]
  - Malaise [None]
  - Headache [None]
  - Chills [None]
  - Alopecia [None]
  - Pain of skin [None]
  - Weight decreased [None]
  - Urinary tract infection [None]
  - Mouth ulceration [None]
  - Drug hypersensitivity [None]
